FAERS Safety Report 8482099 (Version 2)
Quarter: 2012Q4

REPORT INFORMATION
  Report Type: Report from Study
  Country: DK (occurrence: DK)
  Receive Date: 20120329
  Receipt Date: 20120907
  Transmission Date: 20130627
  Serious: Yes (Life-Threatening, Hospitalization, Disabling)
  Sender: FDA-Public Use
  Company Number: DK-SANOFI-AVENTIS-2012SA019195

PATIENT
  Age: 53 Year
  Sex: Female
  Weight: 83 kg

DRUGS (7)
  1. TAXOTERE [Suspect]
     Indication: BREAST CANCER
     Dosage: Dose - 18ml out of 250 ml (150mg taxotere per 250 mlNaCl solution 9mg/ml)
     Route: 042
     Dates: start: 20101207, end: 20101207
  2. CYCLOPHOSPHAMIDE [Suspect]
     Indication: BREAST CANCER
     Route: 042
     Dates: start: 20110106
  3. CYCLOPHOSPHAMIDE [Suspect]
     Indication: BREAST CANCER
     Route: 042
     Dates: start: 20101207
  4. EPIRUBICIN [Suspect]
     Indication: BREAST CANCER
     Route: 042
     Dates: start: 20110106
  5. EPIRUBICIN [Suspect]
     Indication: BREAST CANCER
     Route: 042
     Dates: start: 20101207
  6. NEULASTA [Suspect]
     Indication: G-CSF THERAPY
     Route: 058
     Dates: start: 20101207, end: 20110106
  7. CLEMASTINE [Concomitant]
     Indication: BREAST CANCER
     Route: 065
     Dates: start: 20101207

REACTIONS (4)
  - Leg amputation [Recovered/Resolved]
  - Thrombectomy [Unknown]
  - Thrombosis [Recovered/Resolved with Sequelae]
  - Pain in extremity [Unknown]
